FAERS Safety Report 18506916 (Version 1)
Quarter: 2020Q4

REPORT INFORMATION
  Report Type: Spontaneous
  Country: US (occurrence: US)
  Receive Date: 20201114
  Receipt Date: 20201114
  Transmission Date: 20210114
  Serious: No
  Sender: FDA-Public Use
  Company Number: None

PATIENT
  Age: 35 Year
  Sex: Female
  Weight: 42.75 kg

DRUGS (2)
  1. ATIVAN [Suspect]
     Active Substance: LORAZEPAM
     Indication: SLEEP DISORDER
     Dosage: ?          QUANTITY:1 TABLET(S);?
     Route: 048
     Dates: start: 20200411, end: 20200527
  2. ATENOLOL. [Concomitant]
     Active Substance: ATENOLOL

REACTIONS (13)
  - Psychotic disorder [None]
  - Withdrawal syndrome [None]
  - Dyspnoea [None]
  - Fatigue [None]
  - Anxiety [None]
  - Weight decreased [None]
  - Headache [None]
  - Arthralgia [None]
  - Myalgia [None]
  - Depression [None]
  - Gastrointestinal disorder [None]
  - Insomnia [None]
  - Drug hypersensitivity [None]

NARRATIVE: CASE EVENT DATE: 20200523
